FAERS Safety Report 14860318 (Version 1)
Quarter: 2018Q2

REPORT INFORMATION
  Report Type: Spontaneous
  Country: BE (occurrence: BE)
  Receive Date: 20180508
  Receipt Date: 20180508
  Transmission Date: 20180711
  Serious: Yes (Hospitalization)
  Sender: FDA-Public Use
  Company Number: BE-PFIZER INC-2018158796

PATIENT
  Age: 54 Year
  Sex: Male
  Weight: 98 kg

DRUGS (17)
  1. PRAVASTATINE [Concomitant]
     Active Substance: PRAVASTATIN
     Dosage: UNK
  2. RIFAMPICINE [Interacting]
     Active Substance: RIFAMPIN
     Indication: PNEUMONIA KLEBSIELLA
     Dosage: UNK(DURING 3 WEEKS AND DISCONTINUED 5 DAYS BEFORE THE VORICONAZOLE TREATMENT WAS STARTED)
  3. MYCOPHENOLATEMOFETIL ACCORD [Concomitant]
     Active Substance: MYCOPHENOLATE MOFETIL
     Dosage: UNK
  4. TACROLIMUS. [Concomitant]
     Active Substance: TACROLIMUS
     Dosage: UNK
  5. VORICONAZOLE. [Suspect]
     Active Substance: VORICONAZOLE
     Indication: BRONCHOPULMONARY ASPERGILLOSIS
     Dosage: 6 MG/KG, Q12H, FIRST 24H
     Route: 042
  6. VORICONAZOLE. [Interacting]
     Active Substance: VORICONAZOLE
     Dosage: 600 MG, Q12H, 4 DAYS AFTER START
  7. IPRATROPIUMBROMIDE SANDOZ [Concomitant]
     Dosage: UNK
     Route: 055
  8. FENOTEROL [Concomitant]
     Active Substance: FENOTEROL
     Dosage: UNK
     Route: 055
  9. METHYLPREDNISOLON [Concomitant]
     Active Substance: METHYLPREDNISOLONE
     Dosage: UNK
  10. SERTRALINE [Concomitant]
     Active Substance: SERTRALINE HYDROCHLORIDE
     Dosage: UNK
  11. EZETIMIBE. [Concomitant]
     Active Substance: EZETIMIBE
     Dosage: UNK
  12. AMITRIPTYLINE [Concomitant]
     Active Substance: AMITRIPTYLINE
     Dosage: UNK
  13. FENTANYL. [Concomitant]
     Active Substance: FENTANYL
     Dosage: UNK
  14. VORICONAZOLE. [Interacting]
     Active Substance: VORICONAZOLE
     Indication: BRONCHOPULMONARY ASPERGILLOSIS
     Dosage: 4 MG/KG, Q12H AS OF SECOND DAY
  15. ACICLOVIR [Concomitant]
     Active Substance: ACYCLOVIR
     Dosage: UNK
  16. TRAMADOL. [Concomitant]
     Active Substance: TRAMADOL
     Dosage: UNK
  17. RANITIDINE. [Concomitant]
     Active Substance: RANITIDINE
     Dosage: UNK

REACTIONS (2)
  - Drug interaction [Unknown]
  - Drug level decreased [Unknown]
